FAERS Safety Report 13836316 (Version 2)
Quarter: 2017Q3

REPORT INFORMATION
  Report Type: Report from Study
  Country: US (occurrence: US)
  Receive Date: 20170804
  Receipt Date: 20170817
  Transmission Date: 20171127
  Serious: Yes (Hospitalization)
  Sender: FDA-Public Use
  Company Number: PHHO2017US011262

PATIENT
  Age: 46 Year
  Sex: Male
  Weight: 97.3 kg

DRUGS (2)
  1. KISQALI [Suspect]
     Active Substance: RIBOCICLIB
     Indication: SARCOMA
     Dosage: 200 MG, QD (FOR 1-7 DAYS)
     Route: 048
     Dates: start: 20170710, end: 20170717
  2. HYDROCODONE [Concomitant]
     Active Substance: HYDROCODONE
     Indication: PAIN
     Dosage: 5-325 MG
     Route: 048

REACTIONS (1)
  - Groin abscess [Unknown]

NARRATIVE: CASE EVENT DATE: 20170721
